FAERS Safety Report 11485981 (Version 1)
Quarter: 2015Q3

REPORT INFORMATION
  Report Type: Spontaneous
  Country: US (occurrence: US)
  Receive Date: 20150910
  Receipt Date: 20150910
  Transmission Date: 20151125
  Serious: No
  Sender: FDA-Public Use
  Company Number: US-ASTRAZENECA-2015SE85009

PATIENT
  Age: 57 Year
  Sex: Female

DRUGS (3)
  1. MOVANTIK [Suspect]
     Active Substance: NALOXEGOL OXALATE
     Indication: CONSTIPATION
     Route: 048
     Dates: start: 20150827, end: 20150829
  2. VALIUM [Concomitant]
     Active Substance: DIAZEPAM
     Indication: ANXIETY
     Route: 048
  3. METHADONE [Concomitant]
     Active Substance: METHADONE HYDROCHLORIDE
     Indication: NEURALGIA
     Route: 048

REACTIONS (12)
  - Feeling abnormal [Unknown]
  - Intentional product misuse [Unknown]
  - Stress [Unknown]
  - Rhinorrhoea [Unknown]
  - Muscle spasms [Unknown]
  - Nausea [Unknown]
  - Drug withdrawal syndrome [Unknown]
  - Abdominal pain upper [Unknown]
  - Head discomfort [Unknown]
  - Off label use [Unknown]
  - Headache [Unknown]
  - Polyuria [Unknown]

NARRATIVE: CASE EVENT DATE: 2015
